FAERS Safety Report 5408161-2 (Version None)
Quarter: 2007Q3

REPORT INFORMATION
  Report Type: 
  Country: None (occurrence: None)
  Receive Date: 20070806
  Receipt Date: 20070720
  Transmission Date: 20080115
  Serious: Yes (Life-Threatening, Hospitalization)
  Sender: FDA-Public Use
  Company Number: DSA_30157_2007

PATIENT
  Sex: Female

DRUGS (4)
  1. LORAZEPAM [Suspect]
     Dosage: (6 MG 1X ORAL)
     Route: 048
     Dates: start: 20070623, end: 20070623
  2. PARACETAMOL (PARACETAMOL) 500 MG [Suspect]
     Dosage: (15000 G 1X ORAL)
     Route: 048
     Dates: start: 20070623, end: 20070623
  3. ZOPICLONE (ZOPICLONE) 10 MG [Suspect]
     Dosage: (40 MG 1X ORAL)
     Route: 048
     Dates: start: 20070623, end: 20070623
  4. ETHANOL (ETHANOL) [Suspect]
     Dosage: (DF)

REACTIONS (5)
  - MULTIPLE DRUG OVERDOSE INTENTIONAL [None]
  - NAUSEA [None]
  - SOMNOLENCE [None]
  - SUICIDE ATTEMPT [None]
  - VOMITING [None]
